FAERS Safety Report 10017547 (Version 1)
Quarter: 2014Q1

REPORT INFORMATION
  Report Type: Spontaneous
  Country: US (occurrence: US)
  Receive Date: 20140318
  Receipt Date: 20140318
  Transmission Date: 20141002
  Serious: No
  Sender: FDA-Public Use
  Company Number: US-009507513-1403USA007996

PATIENT
  Age: 19 Year
  Sex: Female
  Weight: 48.53 kg

DRUGS (1)
  1. IMPLANON [Suspect]
     Indication: CONTRACEPTION
     Dosage: 1 ROD UP TO 3 YEARS
     Route: 058
     Dates: start: 20110926

REACTIONS (1)
  - Metrorrhagia [Not Recovered/Not Resolved]
